FAERS Safety Report 5709293-1 (Version None)
Quarter: 2008Q2

REPORT INFORMATION
  Report Type: 
  Country: None (occurrence: None)
  Receive Date: 20080418
  Receipt Date: 20080409
  Transmission Date: 20081010
  Serious: Yes (Other)
  Sender: FDA-Public Use
  Company Number: US-ASTRAZENECA-2008AC00920

PATIENT

DRUGS (2)
  1. LISINOPRIL [Suspect]
  2. 2 ANTIHYPERTENSIVE AGENTS [Concomitant]

REACTIONS (2)
  - HYPERPARATHYROIDISM SECONDARY [None]
  - RENAL FAILURE [None]
